FAERS Safety Report 10900764 (Version 2)
Quarter: 2015Q1

REPORT INFORMATION
  Report Type: Report from Study
  Country: GR (occurrence: GR)
  Receive Date: 20150310
  Receipt Date: 20150312
  Transmission Date: 20150721
  Serious: Yes (Other)
  Sender: FDA-Public Use
  Company Number: GR-SA-2015SA028108

PATIENT

DRUGS (4)
  1. CISPLATIN. [Suspect]
     Active Substance: CISPLATIN
     Indication: HEAD AND NECK CANCER
     Dosage: DAY 1ST AND 4TH OF EACH WEEK
     Route: 065
  2. CISPLATIN. [Suspect]
     Active Substance: CISPLATIN
     Indication: HEAD AND NECK CANCER
     Dosage: EVERY WEEK FOR 3-4 CONSECUTIVE WEEKS (1ST CYCLE) FOR 6 CYCLES
     Route: 065
  3. TAXOTERE [Suspect]
     Active Substance: DOCETAXEL
     Indication: HEAD AND NECK CANCER
     Dosage: DAY 1ST AND 4TH OF EACH WEEK
     Route: 065
  4. TAXOTERE [Suspect]
     Active Substance: DOCETAXEL
     Indication: HEAD AND NECK CANCER
     Dosage: EVERY WEEK FOR 3-4 CONSECUTIVE WEEKS (1ST CYCLE) FOR 6 CYCLES
     Route: 065

REACTIONS (1)
  - Laryngeal oedema [Unknown]
